FAERS Safety Report 5209609-9 (Version None)
Quarter: 2006Q4

REPORT INFORMATION
  Report Type: 
  Country: None (occurrence: None)
  Receive Date: 20061122
  Receipt Date: 20051031
  Transmission Date: 20070319
  Serious: Yes (Hospitalization, Other)
  Sender: FDA-Public Use
  Company Number: 2005148882

PATIENT
  Sex: Female
  Weight: 86.1834 kg

DRUGS (13)
  1. LIPITOR [Suspect]
     Indication: BLOOD CHOLESTEROL INCREASED
     Dates: start: 20010101, end: 20050101
  2. TIKOSYN [Suspect]
     Indication: ATRIAL FIBRILLATION
     Dosage: 250 MCG (125 MCG, 2 IN 1 D)
     Dates: start: 20041101
  3. PLAVIX [Concomitant]
  4. VITAMIN E [Concomitant]
  5. VITAMIN C (VITAMIN C) [Concomitant]
  6. LASIX [Concomitant]
  7. ALLEGRA [Concomitant]
  8. CLINDAMYCIN [Concomitant]
  9. MECLIZINE [Concomitant]
  10. NEXIUM [Concomitant]
  11. POTASSIUM (POTASSIUM) [Concomitant]
  12. ZANTAC [Concomitant]
  13. FLEXERIL [Concomitant]

REACTIONS (10)
  - ARTHRITIS [None]
  - ATRIAL FIBRILLATION [None]
  - BACK PAIN [None]
  - BLOOD PRESSURE INCREASED [None]
  - BONE PAIN [None]
  - HEADACHE [None]
  - HEART RATE INCREASED [None]
  - MUSCLE SPASMS [None]
  - PALPITATIONS [None]
  - RESPIRATORY TRACT INFECTION [None]
